FAERS Safety Report 24794215 (Version 2)
Quarter: 2025Q1

REPORT INFORMATION
  Report Type: Spontaneous
  Country: DE (occurrence: DE)
  Receive Date: 20241231
  Receipt Date: 20250117
  Transmission Date: 20250409
  Serious: Yes (Other)
  Sender: SANDOZ
  Company Number: None

PATIENT
  Sex: Female

DRUGS (14)
  1. AMLODIPINE BESYLATE [Suspect]
     Active Substance: AMLODIPINE BESYLATE
     Indication: Osteoporosis
     Route: 065
  2. BISOPROLOL [Suspect]
     Active Substance: BISOPROLOL
     Indication: Osteoporosis
     Dosage: 0-0-1UNK
     Route: 065
  3. ELIQUIS [Suspect]
     Active Substance: APIXABAN
     Indication: Product used for unknown indication
     Route: 065
  4. METAMIZOLE [Suspect]
     Active Substance: METAMIZOLE
     Indication: Product used for unknown indication
     Dosage: 1-1-1UNK
     Route: 065
  5. HYDROCHLOROTHIAZIDE\OLMESARTAN MEDOXOMIL [Suspect]
     Active Substance: HYDROCHLOROTHIAZIDE\OLMESARTAN MEDOXOMIL
     Indication: Product used for unknown indication
     Dosage: 1-0-0UNK/ 20MG/12.5MG
     Route: 065
  6. PANTOPRAZOLE SODIUM [Suspect]
     Active Substance: PANTOPRAZOLE SODIUM
     Indication: Product used for unknown indication
     Dosage: 1-0-0UNK
     Route: 065
  7. SIMVASTATIN [Suspect]
     Active Substance: SIMVASTATIN
     Indication: Product used for unknown indication
     Dosage: 0-0-1UNK
     Route: 065
  8. TORSEMIDE [Suspect]
     Active Substance: TORSEMIDE
     Indication: Product used for unknown indication
     Dosage: 1-0-0UNK
     Route: 065
  9. NALOXONE HYDROCHLORIDE\TILIDINE HYDROCHLORIDE [Suspect]
     Active Substance: NALOXONE HYDROCHLORIDE\TILIDINE HYDROCHLORIDE
     Indication: Product used for unknown indication
     Route: 065
  10. CYANOCOBALAMIN\LIDOCAINE HYDROCHLORIDE\PYRIDOXINE HYDROCHLORIDE\THIAMI [Suspect]
     Active Substance: CYANOCOBALAMIN\LIDOCAINE HYDROCHLORIDE\PYRIDOXINE HYDROCHLORIDE\THIAMINE HYDROCHLORIDE
     Indication: Product used for unknown indication
     Dosage: 0-1-0UNK, VITAMIN D3 1000 I.E. TABLETTEN
     Route: 065
  11. PREGABALIN [Concomitant]
     Active Substance: PREGABALIN
     Indication: Product used for unknown indication
     Dosage: 0-0-1UNK
     Route: 065
     Dates: end: 20241109
  12. PREGABALIN [Concomitant]
     Active Substance: PREGABALIN
     Route: 065
     Dates: start: 20241110, end: 20241112
  13. PROLIA [Concomitant]
     Active Substance: DENOSUMAB
     Indication: Product used for unknown indication
     Route: 065
  14. CHOLECALCIFEROL [Concomitant]
     Active Substance: CHOLECALCIFEROL
     Indication: Product used for unknown indication
     Route: 065

REACTIONS (6)
  - Sudden onset of sleep [Unknown]
  - Sleep disorder [Unknown]
  - Disturbance in attention [Unknown]
  - General physical health deterioration [Unknown]
  - Gamma-glutamyltransferase increased [Unknown]
  - Somnolence [Unknown]
